FAERS Safety Report 4505612-2 (Version None)
Quarter: 2004Q4

REPORT INFORMATION
  Report Type: 
  Country: None (occurrence: None)
  Receive Date: 20041119
  Receipt Date: 20020510
  Transmission Date: 20050328
  Serious: Yes (Death, Hospitalization, Other)
  Sender: FDA-Public Use
  Company Number: ZA-NOVOPROD-216409

PATIENT
  Age: 32 Year
  Sex: Male
  Weight: 80 kg

DRUGS (4)
  1. NOVOSEVEN [Suspect]
     Indication: INJURY
     Dosage: 3 DOSES
     Route: 042
     Dates: start: 20020509, end: 20020509
  2. MORPHINE [Concomitant]
     Dosage: 4 MG, PRN
     Route: 042
     Dates: start: 20020509
  3. ADRENALIN IN OIL INJ [Concomitant]
     Route: 042
     Dates: start: 20020509
  4. DORMICUM FOR INJECTION [Concomitant]
     Dosage: 4 MG, PRN
     Route: 042
     Dates: start: 20030509

REACTIONS (4)
  - ARTERIAL THROMBOSIS LIMB [None]
  - BRAIN OEDEMA [None]
  - MYOCARDIAL HAEMORRHAGE [None]
  - PULMONARY OEDEMA [None]
